FAERS Safety Report 5143309-9 (Version None)
Quarter: 2006Q4

REPORT INFORMATION
  Report Type: 
  Country: None (occurrence: None)
  Receive Date: 20061103
  Receipt Date: 20061023
  Transmission Date: 20070319
  Serious: Yes (Hospitalization)
  Sender: FDA-Public Use
  Company Number: IT-ROCHE-468214

PATIENT
  Age: 52 Year
  Sex: Female
  Weight: 48 kg

DRUGS (1)
  1. PEG-INTERFERON A-2A (RO 25-8310) [Suspect]
     Dosage: DOSAGE FORM: PREDOSED SYRINGE. DATE OF LAST DOSE PRIOR TO SAE: 21 AUGUST 2006.
     Route: 058
     Dates: start: 20051209, end: 20060821

REACTIONS (2)
  - INTERSTITIAL LUNG DISEASE [None]
  - PERICARDIAL EFFUSION [None]
